FAERS Safety Report 9474870 (Version 2)
Quarter: 2013Q3

REPORT INFORMATION
  Report Type: Spontaneous
  Country: PL (occurrence: PL)
  Receive Date: 20130823
  Receipt Date: 20130823
  Transmission Date: 20140515
  Serious: Yes (Other)
  Sender: FDA-Public Use
  Company Number: PL-BIOMARINAP-PL-2013-101362

PATIENT
  Age: 18 Year
  Sex: Female

DRUGS (11)
  1. KUVAN [Suspect]
     Indication: TETRAHYDROBIOPTERIN DEFICIENCY
     Dosage: 0.65 MG/KG, QD
  2. KUVAN [Suspect]
     Dosage: 1 MG/KG, QD
  3. SINEMET [Suspect]
     Indication: TETRAHYDROBIOPTERIN DEFICIENCY
     Dosage: 4.5 MG/KG, QD
  4. SINEMET [Suspect]
     Dosage: 5.4 MG/KG, QD
  5. SINEMET [Suspect]
     Dosage: 5.8 MG/KG, QD
  6. SINEMET [Suspect]
     Dosage: 6 MG/KG, QD
  7. OXITRIPTAN [Suspect]
     Indication: TETRAHYDROBIOPTERIN DEFICIENCY
     Dosage: 6.6 MG/KG, QD
  8. OXITRIPTAN [Suspect]
     Dosage: 7.2 MG/KG, QD
  9. OXITRIPTAN [Suspect]
     Dosage: 7.5 MG/KG, QD
  10. OXITRIPTAN [Suspect]
     Dosage: 8 MG/KG, QD
  11. PROGESTERONE [Suspect]
     Indication: PROPHYLAXIS

REACTIONS (8)
  - Gestational diabetes [Unknown]
  - Exposure during pregnancy [Recovered/Resolved]
  - Vascular resistance systemic increased [Unknown]
  - Nausea [Unknown]
  - Vomiting in pregnancy [Unknown]
  - Vaginal infection [Unknown]
  - Premature delivery [Recovered/Resolved]
  - Live birth [Recovered/Resolved]
